FAERS Safety Report 6335102-6 (Version None)
Quarter: 2009Q3

REPORT INFORMATION
  Report Type: 
  Country: None (occurrence: None)
  Receive Date: 20090826
  Receipt Date: 20090812
  Transmission Date: 20100115
  Serious: Yes (Death)
  Sender: FDA-Public Use
  Company Number: 8050669

PATIENT
  Age: 70 Year
  Sex: Female

DRUGS (14)
  1. PREDNISOLONE [Suspect]
     Indication: RHEUMATOID ARTHRITIS
     Dosage: 5 MG /D
  2. PREDNISOLONE [Suspect]
     Indication: RHEUMATOID ARTHRITIS
     Dosage: 7.5 MG /D
  3. PREDNISOLONE [Suspect]
     Indication: RHEUMATOID ARTHRITIS
     Dosage: 5 MG /D
  4. PREDNISOLONE [Suspect]
     Indication: RHEUMATOID ARTHRITIS
     Dosage: 10 MG /D
  5. METHOTREXATE [Suspect]
     Indication: RHEUMATOID ARTHRITIS
     Dosage: 15 MG 1/W PO
     Route: 048
  6. METHOTREXATE [Suspect]
     Indication: RHEUMATOID ARTHRITIS
     Dosage: 20 MG 1/W PO
     Route: 048
  7. METHOTREXATE [Suspect]
     Indication: RHEUMATOID ARTHRITIS
     Dosage: 10 MG 1/W PO
     Route: 048
  8. DICLOFENAC [Suspect]
     Dosage: 150 MG /D PO
     Route: 048
  9. DICLOFENAC [Suspect]
     Dosage: 75 MG /D PO
     Route: 048
  10. DICLOFENAC [Suspect]
     Dosage: 200 MG /D PO
     Route: 048
  11. SULFASALAZINE [Concomitant]
  12. ETANERCEPT [Concomitant]
  13. RAMIPRIL [Concomitant]
  14. GLIPIZIDE [Concomitant]

REACTIONS (14)
  - AREFLEXIA [None]
  - CALCINOSIS [None]
  - DYSSTASIA [None]
  - GAIT DISTURBANCE [None]
  - HYPOAESTHESIA [None]
  - LOSS OF PROPRIOCEPTION [None]
  - MUSCULAR WEAKNESS [None]
  - MUSCULOSKELETAL STIFFNESS [None]
  - NECK PAIN [None]
  - PARAESTHESIA [None]
  - PARALYSIS FLACCID [None]
  - POLYARTHRITIS [None]
  - REFUSAL OF TREATMENT BY PATIENT [None]
  - SENSORY DISTURBANCE [None]
